FAERS Safety Report 4384913-5 (Version None)
Quarter: 2004Q2

REPORT INFORMATION
  Report Type: 
  Country: None (occurrence: None)
  Receive Date: 20040621
  Receipt Date: 20040607
  Transmission Date: 20050107
  Serious: Yes (Disabling)
  Sender: FDA-Public Use
  Company Number: 04P-122-0263266-00

PATIENT
  Sex: Female

DRUGS (2)
  1. HUMIRA [Suspect]
     Indication: RHEUMATOID ARTHRITIS
     Dosage: SUBCUTANEOUS
     Route: 058
  2. METHOTREXATE [Concomitant]

REACTIONS (5)
  - INJECTION SITE ERYTHEMA [None]
  - INJECTION SITE PAIN [None]
  - NASAL CONGESTION [None]
  - PRURITUS [None]
  - TACHYCARDIA [None]
